FAERS Safety Report 5173726-2 (Version None)
Quarter: 2006Q4

REPORT INFORMATION
  Report Type: 
  Country: None (occurrence: None)
  Receive Date: 20061214
  Receipt Date: 20060830
  Transmission Date: 20070319
  Serious: Yes (Other)
  Sender: FDA-Public Use
  Company Number: SE-ELI_LILLY_AND_COMPANY-SE200608006776

PATIENT
  Age: 30 Year
  Sex: Female

DRUGS (4)
  1. PROPAVAN [Concomitant]
     Indication: SLEEP DISORDER
     Dosage: 1-2 TABLETS, DAILY (1/D)
  2. ACETAMINOPHEN [Concomitant]
     Indication: PAIN
     Dosage: 5 TABLETS, DAILY (1/D)
  3. PARAFLEX [Concomitant]
     Dosage: 0-4 TABLETS DAILY
  4. CYMBALTA [Suspect]
     Indication: DEPRESSION
     Dosage: 90 MG, DAILY (1/D)
     Route: 065
     Dates: start: 20051017

REACTIONS (4)
  - ABORTION SPONTANEOUS [None]
  - DRUG EXPOSURE DURING PREGNANCY [None]
  - PREGNANCY [None]
  - STILLBIRTH [None]
